FAERS Safety Report 20512767 (Version 1)
Quarter: 2022Q1

REPORT INFORMATION
  Report Type: Spontaneous
  Country: IT (occurrence: IT)
  Receive Date: 20220224
  Receipt Date: 20220224
  Transmission Date: 20220423
  Serious: Yes (Other)
  Sender: FDA-Public Use
  Company Number: IT-ABBVIE-22K-083-4288423-00

PATIENT
  Age: 60 Year
  Sex: Male

DRUGS (6)
  1. VALPROATE SODIUM [Suspect]
     Active Substance: VALPROATE SODIUM
     Indication: Epilepsy
     Route: 048
     Dates: start: 20150101, end: 20190602
  2. LACOSAMIDE [Suspect]
     Active Substance: LACOSAMIDE
     Indication: Epilepsy
     Route: 048
     Dates: start: 20150101, end: 20190602
  3. LEVETIRACETAM [Suspect]
     Active Substance: LEVETIRACETAM
     Indication: Epilepsy
     Route: 048
     Dates: start: 20150101, end: 20190602
  4. CLONAZEPAM [Suspect]
     Active Substance: CLONAZEPAM
     Indication: Product administration error
     Route: 048
     Dates: start: 20190602, end: 20190602
  5. CLOZAPINE [Suspect]
     Active Substance: CLOZAPINE
     Indication: Product administration error
     Route: 048
     Dates: start: 20190602, end: 20190602
  6. BIPERIDEN [Suspect]
     Active Substance: BIPERIDEN
     Indication: Product administration error
     Route: 048
     Dates: start: 20190602, end: 20190602

REACTIONS (2)
  - Sopor [Recovering/Resolving]
  - Medication error [Unknown]

NARRATIVE: CASE EVENT DATE: 20190602
